FAERS Safety Report 7586930-0 (Version None)
Quarter: 2011Q3

REPORT INFORMATION
  Report Type: 
  Country: None (occurrence: None)
  Receive Date: 20110701
  Receipt Date: 20110628
  Transmission Date: 20111222
  Serious: Yes (Other)
  Sender: FDA-Public Use
  Company Number: JP-GENZYME-FLUD-1000637

PATIENT
  Age: 15 Year
  Sex: Female

DRUGS (11)
  1. CYTARABINE [Suspect]
     Indication: ACUTE LYMPHOCYTIC LEUKAEMIA
  2. ETOPOSIDE [Suspect]
     Indication: ACUTE LYMPHOCYTIC LEUKAEMIA
  3. CYCLOSPORINE [Concomitant]
     Indication: PROPHYLAXIS AGAINST GRAFT VERSUS HOST DISEASE
     Dosage: 3 MG/KG, QD
     Route: 042
  4. CYTARABINE [Suspect]
     Indication: STEM CELL TRANSPLANT
     Dosage: 140 MG/M2, QD
     Route: 065
  5. FLUDARA [Suspect]
     Indication: STEM CELL TRANSPLANT
     Dosage: 25 MG/M2, QDX5
     Route: 065
  6. FLUDARA [Suspect]
     Indication: ACUTE LYMPHOCYTIC LEUKAEMIA
  7. ETOPOSIDE [Suspect]
     Indication: STEM CELL TRANSPLANT
     Dosage: 200 MG/M2, QD
     Route: 065
  8. MELPHALAN HYDROCHLORIDE [Suspect]
     Indication: STEM CELL TRANSPLANT
     Dosage: 140 MG/M2, QD
     Route: 065
  9. IMATINIB MESYLATE [Concomitant]
     Indication: PROPHYLAXIS
     Dosage: 400 MG, QD
  10. MELPHALAN HYDROCHLORIDE [Suspect]
     Indication: ACUTE LYMPHOCYTIC LEUKAEMIA
  11. SPRYCEL [Concomitant]
     Indication: ACUTE LYMPHOCYTIC LEUKAEMIA
     Dosage: 140 MG, QD

REACTIONS (3)
  - CYSTITIS HAEMORRHAGIC [None]
  - CYTOMEGALOVIRUS TEST POSITIVE [None]
  - ACUTE GRAFT VERSUS HOST DISEASE IN INTESTINE [None]
